FAERS Safety Report 8150926-0 (Version None)
Quarter: 2012Q1

REPORT INFORMATION
  Report Type: 
  Country: None (occurrence: None)
  Receive Date: 20120220
  Receipt Date: 20120215
  Transmission Date: 20120608
  Serious: Yes (Death, Hospitalization, Other)
  Sender: FDA-Public Use
  Company Number: JP-ABBOTT-11P-087-0718807-00

PATIENT
  Sex: Female

DRUGS (6)
  1. ZOLPIDEM TARTRATE [Concomitant]
     Indication: PROPHYLAXIS
     Dates: end: 20100426
  2. PREDNISOLONE [Concomitant]
     Indication: RHEUMATOID ARTHRITIS
     Route: 048
     Dates: start: 20100426
  3. MIZORIBINE [Concomitant]
     Indication: RHEUMATOID ARTHRITIS
     Dates: end: 20110303
  4. SULFAMETHOXAZOLE + TRIMETHOPRIM [Concomitant]
     Indication: INFECTION PROPHYLAXIS
  5. ALENDRONATE SODIUM [Concomitant]
     Indication: PROPHYLAXIS
     Dosage: 35MG/W
     Dates: start: 20100426
  6. HUMIRA [Suspect]
     Indication: RHEUMATOID ARTHRITIS
     Route: 058
     Dates: start: 20090930, end: 20101210

REACTIONS (26)
  - CARDIAC FAILURE [None]
  - DEPRESSED LEVEL OF CONSCIOUSNESS [None]
  - RESPIRATORY DISORDER [None]
  - HYPOPHAGIA [None]
  - PYREXIA [None]
  - CARDIAC MURMUR [None]
  - DECREASED APPETITE [None]
  - WEIGHT DECREASED [None]
  - ANAEMIA [None]
  - PERICARDITIS [None]
  - COLLAGEN DISORDER [None]
  - CARDIAC ARREST [None]
  - CIRCULATORY COLLAPSE [None]
  - INFECTION [None]
  - PNEUMONIA [None]
  - PROTEIN TOTAL DECREASED [None]
  - MALAISE [None]
  - HIATUS HERNIA [None]
  - CARDIOMEGALY [None]
  - BLOOD PRESSURE DECREASED [None]
  - GASTROINTESTINAL AMYLOIDOSIS [None]
  - BLOOD ALBUMIN DECREASED [None]
  - HAEMATEMESIS [None]
  - HAEMATOCHEZIA [None]
  - GASTRITIS HAEMORRHAGIC [None]
  - MALNUTRITION [None]
